FAERS Safety Report 15802367 (Version 1)
Quarter: 2019Q1

REPORT INFORMATION
  Report Type: Spontaneous
  Country: US (occurrence: US)
  Receive Date: 20190104
  Receipt Date: 20190104
  Transmission Date: 20190417
  Serious: Yes (Hospitalization)
  Sender: FDA-Public Use
  Company Number: None

PATIENT

DRUGS (2)
  1. MEBENDAZOLE MEBENDAZOLE [Suspect]
     Active Substance: MEBENDAZOLE
  2. CARBIMAZOLE CARBIMAZOLE [Suspect]
     Active Substance: CARBIMAZOLE

REACTIONS (4)
  - Product prescribing error [None]
  - Product dispensing error [None]
  - Product name confusion [None]
  - Intercepted product dispensing error [None]
